FAERS Safety Report 7191169-7 (Version None)
Quarter: 2010Q4

REPORT INFORMATION
  Report Type: 
  Country: None (occurrence: None)
  Receive Date: 20101223
  Receipt Date: 20101220
  Transmission Date: 20110411
  Serious: Yes (Other)
  Sender: FDA-Public Use
  Company Number: US-JNJCH-2010021472

PATIENT
  Age: 84 Year
  Sex: Female
  Weight: 69.4 kg

DRUGS (9)
  1. PRECISE EXTRA STRENGTH PAIN RELIEVING CREAM [Suspect]
     Indication: CHEST PAIN
     Dosage: TEXT:ONCE A DAY
     Route: 061
  2. COUMADIN [Concomitant]
     Indication: BLOOD DISORDER
     Dosage: DAILY DOSE:3MG-TEXT:ONE DAILY
     Route: 065
     Dates: start: 19870101
  3. LISINOPRIL [Concomitant]
     Indication: HYPERTENSION
     Dosage: DAILY DOSE:10MG-TEXT:ONE DAILY
     Route: 065
  4. INDERAL [Concomitant]
     Indication: HYPERTENSION
     Dosage: DAILY DOSE:60MG-TEXT:ONE DAILY
     Route: 065
  5. VITAMIN E [Concomitant]
     Indication: PRODUCT USED FOR UNKNOWN INDICATION
     Dosage: TEXT:ONE DAILY
     Route: 065
     Dates: start: 19870101
  6. VITAMIN D [Concomitant]
     Indication: PRODUCT USED FOR UNKNOWN INDICATION
     Dosage: TEXT:1000 IU ONCE DAILY
     Route: 065
  7. HYDROCHLOROTHIAZIDE [Concomitant]
     Indication: FLUID RETENTION
     Dosage: DAILY DOSE:25MG-TEXT:ONE AS NEEDED
     Route: 065
     Dates: start: 20100913
  8. EXTRA STRENGTH TYLENOL [Concomitant]
     Indication: PAIN
     Dosage: TEXT:TWO TAB ONCE A DAY
     Route: 048
  9. ASCORBIC ACID [Concomitant]
     Indication: PRODUCT USED FOR UNKNOWN INDICATION
     Dosage: TEXT:ONE DAILY
     Route: 065
     Dates: start: 19870101

REACTIONS (6)
  - DIZZINESS [None]
  - EXPIRED DRUG ADMINISTERED [None]
  - FATIGUE [None]
  - HALLUCINATION, VISUAL [None]
  - HYPERSENSITIVITY [None]
  - LOSS OF CONSCIOUSNESS [None]
